FAERS Safety Report 4617225-2 (Version None)
Quarter: 2005Q1

REPORT INFORMATION
  Report Type: 
  Country: None (occurrence: None)
  Receive Date: 20050323
  Receipt Date: 20050302
  Transmission Date: 20050727
  Serious: Yes (Life-Threatening, Hospitalization)
  Sender: FDA-Public Use
  Company Number: PHBS2005JP03047

PATIENT
  Sex: Female

DRUGS (5)
  1. TEGRETOL [Suspect]
     Indication: POST HERPETIC NEURALGIA
     Dosage: 100 MG, TID
     Route: 048
     Dates: start: 20050207, end: 20050221
  2. TRYPTANOL [Suspect]
     Indication: POST HERPETIC NEURALGIA
     Dosage: 25 MG, QD
     Route: 048
     Dates: start: 20050202, end: 20050221
  3. CODEINE PHOSPHATE [Suspect]
     Indication: POST HERPETIC NEURALGIA
     Dosage: 20 MG, TID
     Route: 048
     Dates: start: 20050204, end: 20050221
  4. VOLTAREN [Concomitant]
     Indication: POST HERPETIC NEURALGIA
     Dosage: 75 MG/DAY
     Route: 048
     Dates: start: 20050203, end: 20050221
  5. MUCOSTA [Concomitant]
     Indication: POST HERPETIC NEURALGIA
     Dosage: 300 MG/DAY
     Route: 048
     Dates: start: 20050203, end: 20050221

REACTIONS (3)
  - IDIOPATHIC THROMBOCYTOPENIC PURPURA [None]
  - PLATELET COUNT DECREASED [None]
  - THROMBOCYTOPENIA [None]
